FAERS Safety Report 23321001 (Version 1)
Quarter: 2023Q4

REPORT INFORMATION
  Report Type: Spontaneous
  Country: US (occurrence: US)
  Receive Date: 20231220
  Receipt Date: 20231220
  Transmission Date: 20240110
  Serious: No
  Sender: FDA-Public Use
  Company Number: US-GLAXOSMITHKLINE-US2023AMR163672

PATIENT

DRUGS (1)
  1. IBREXAFUNGERP [Suspect]
     Active Substance: IBREXAFUNGERP
     Indication: Endocarditis candida
     Dosage: UNK
     Route: 065

REACTIONS (1)
  - Off label use [Unknown]
